FAERS Safety Report 9502805 (Version 1)
Quarter: 2013Q3

REPORT INFORMATION
  Report Type: Spontaneous
  Country: GB (occurrence: GB)
  Receive Date: 20130906
  Receipt Date: 20130906
  Transmission Date: 20140515
  Serious: Yes (Hospitalization, Other)
  Sender: FDA-Public Use
  Company Number: GB-RANBAXY-2013R1-72453

PATIENT
  Age: 80 Year
  Sex: Female

DRUGS (3)
  1. CEFALEXIN [Suspect]
     Indication: URINARY TRACT INFECTION
     Dosage: 500 MG, BID
     Route: 048
     Dates: start: 20130725
  2. BISOPROLOL [Concomitant]
     Indication: PRODUCT USED FOR UNKNOWN INDICATION
     Dosage: 2.5 MG, QD
     Route: 065
  3. WARFARIN [Concomitant]
     Indication: ATRIAL FIBRILLATION
     Route: 065

REACTIONS (9)
  - Agitation [Unknown]
  - Confusional state [Unknown]
  - Dizziness [Unknown]
  - Somnolence [Unknown]
  - Headache [Unknown]
  - Lethargy [Unknown]
  - Nervous system disorder [Unknown]
  - Pneumonia [Unknown]
  - Syncope [Unknown]
